FAERS Safety Report 6159942-1 (Version None)
Quarter: 2009Q2

REPORT INFORMATION
  Report Type: 
  Country: None (occurrence: None)
  Receive Date: 20090415
  Receipt Date: 20090408
  Transmission Date: 20091009
  Serious: Yes (Hospitalization)
  Sender: FDA-Public Use
  Company Number: 2009-01309

PATIENT
  Age: 52 Year
  Sex: Female

DRUGS (2)
  1. VELCADE [Suspect]
     Indication: MULTIPLE MYELOMA
     Dates: start: 20090116, end: 20090309
  2. DEXAMETHASONE TAB [Concomitant]

REACTIONS (11)
  - BLINDNESS [None]
  - CHEST DISCOMFORT [None]
  - CONVULSION [None]
  - DIZZINESS [None]
  - DYSPNOEA [None]
  - HYPERTENSION [None]
  - LEUKOENCEPHALOPATHY [None]
  - LOSS OF CONSCIOUSNESS [None]
  - NEUROPATHY PERIPHERAL [None]
  - NO THERAPEUTIC RESPONSE [None]
  - TUBERCULOSIS [None]
